FAERS Safety Report 12583327 (Version 1)
Quarter: 2016Q3

REPORT INFORMATION
  Report Type: Spontaneous
  Country: KR (occurrence: KR)
  Receive Date: 20160722
  Receipt Date: 20160722
  Transmission Date: 20161109
  Serious: Yes (Death, Other)
  Sender: FDA-Public Use
  Company Number: KR-SA-2016SA132834

PATIENT
  Sex: Male

DRUGS (1)
  1. ZOLPIDEM [Suspect]
     Active Substance: ZOLPIDEM\ZOLPIDEM TARTRATE
     Dosage: MORE THAN 10 TABLETS OF ZOLPIDEM
     Route: 048
     Dates: end: 2010

REACTIONS (4)
  - Overdose [Fatal]
  - Road traffic accident [Unknown]
  - Amnesia [Unknown]
  - Completed suicide [Fatal]

NARRATIVE: CASE EVENT DATE: 2010
